FAERS Safety Report 23526594 (Version 1)
Quarter: 2024Q1

REPORT INFORMATION
  Report Type: Spontaneous
  Country: US (occurrence: None)
  Receive Date: 20240214
  Receipt Date: 20240214
  Transmission Date: 20240409
  Serious: Yes (Other)
  Sender: FDA-Public Use
  Company Number: None

PATIENT
  Age: 61 Year
  Sex: Female
  Weight: 52.2 kg

DRUGS (15)
  1. PROLIA [Suspect]
     Active Substance: DENOSUMAB
     Indication: Osteoporosis
     Dosage: OTHER FREQUENCY : EVERY 6 MONTHS;?OTHER ROUTE : INJECTION INTO RIGHT ARM;?
     Route: 050
     Dates: start: 20240213
  2. BREZTRI [Concomitant]
     Active Substance: BUDESONIDE\FORMOTEROL\GLYCOPYRROLATE
  3. ALBUTEROL [Concomitant]
     Active Substance: ALBUTEROL
  4. MOTEGRITY [Concomitant]
     Active Substance: PRUCALOPRIDE SUCCINATE
  5. MELOXICAM [Concomitant]
     Active Substance: MELOXICAM
  6. BACLOFEN [Concomitant]
     Active Substance: BACLOFEN
  7. BACLOFEN [Concomitant]
     Active Substance: BACLOFEN
  8. ZOFRAN [Concomitant]
     Active Substance: ONDANSETRON HYDROCHLORIDE
  9. felonipine [Concomitant]
  10. VITAMINS [Concomitant]
     Active Substance: VITAMINS
  11. COLLAGEN [Concomitant]
     Active Substance: COLLAGEN
  12. CALCIUM [Concomitant]
     Active Substance: CALCIUM
  13. VITAMIN D3 [Concomitant]
     Active Substance: CHOLECALCIFEROL
  14. Hair vitamins [Concomitant]
  15. MIRALAX [Concomitant]
     Active Substance: POLYETHYLENE GLYCOL 3350

REACTIONS (3)
  - Pain [None]
  - Pain [None]
  - Pain [None]

NARRATIVE: CASE EVENT DATE: 20240214
